FAERS Safety Report 5510435-1 (Version None)
Quarter: 2007Q4

REPORT INFORMATION
  Report Type: 
  Country: None (occurrence: None)
  Receive Date: 20071108
  Receipt Date: 20071101
  Transmission Date: 20080405
  Serious: Yes (Hospitalization, Disabling)
  Sender: FDA-Public Use
  Company Number: US-ELI_LILLY_AND_COMPANY-US200709000705

PATIENT
  Sex: Female
  Weight: 48.98 kg

DRUGS (3)
  1. CYMBALTA [Suspect]
     Indication: DEPRESSION
     Dosage: 30 MG, DAILY (1/D)
     Route: 048
     Dates: start: 20070827
  2. CYMBALTA [Suspect]
     Dosage: 90 MG, DAILY (1/D)
     Route: 048
     Dates: start: 20070101
  3. REGLAN [Concomitant]

REACTIONS (6)
  - CEREBROVASCULAR ACCIDENT [None]
  - HEADACHE [None]
  - HEMIPARESIS [None]
  - HIGH DENSITY LIPOPROTEIN DECREASED [None]
  - PARAESTHESIA [None]
  - VERTIGO [None]
